FAERS Safety Report 8566845-1 (Version None)
Quarter: 2012Q3

REPORT INFORMATION
  Report Type: 
  Country: None (occurrence: None)
  Receive Date: 20120803
  Receipt Date: 20110804
  Transmission Date: 20120928
  Serious: No
  Sender: FDA-Public Use
  Company Number: US-ABBOTT-11P-163-0843891-00

PATIENT
  Sex: Female

DRUGS (6)
  1. NIASPAN [Suspect]
     Dosage: AT BEDTIME
     Route: 048
  2. NIASPAN [Suspect]
     Indication: CORONARY ARTERY DISEASE
     Dosage: AT BEDTIME
     Route: 048
     Dates: start: 20040101
  3. ZETIA [Concomitant]
     Indication: PRODUCT USED FOR UNKNOWN INDICATION
     Route: 048
  4. CRESTOR [Concomitant]
     Indication: PRODUCT USED FOR UNKNOWN INDICATION
     Route: 048
  5. ASPIRIN [Concomitant]
     Indication: PRODUCT USED FOR UNKNOWN INDICATION
     Route: 048
  6. COMPLETE LIST NOT REPORTED [Concomitant]
     Indication: PRODUCT USED FOR UNKNOWN INDICATION

REACTIONS (4)
  - FEELING HOT [None]
  - ERYTHEMA [None]
  - FLUSHING [None]
  - PRURITUS [None]
